FAERS Safety Report 5201240-4 (Version None)
Quarter: 2007Q1

REPORT INFORMATION
  Report Type: 
  Country: None (occurrence: None)
  Receive Date: 20070108
  Receipt Date: 20070102
  Transmission Date: 20070707
  Serious: Yes (Death, Hospitalization)
  Sender: FDA-Public Use
  Company Number: DE-BRISTOL-MYERS SQUIBB COMPANY-13437389

PATIENT
  Age: 59 Year
  Sex: Male
  Weight: 72 kg

DRUGS (2)
  1. LITALIR [Suspect]
     Indication: GLIOBLASTOMA MULTIFORME
     Route: 048
     Dates: start: 20060412, end: 20060705
  2. GLEEVEC [Suspect]
     Indication: GLIOBLASTOMA MULTIFORME

REACTIONS (2)
  - BRONCHOPULMONARY ASPERGILLOSIS [None]
  - MALIGNANT NEOPLASM PROGRESSION [None]
